FAERS Safety Report 4705394-5 (Version None)
Quarter: 2005Q2

REPORT INFORMATION
  Report Type: 
  Country: None (occurrence: None)
  Receive Date: 20050630
  Receipt Date: 20050630
  Transmission Date: 20051028
  Serious: Yes (Death, Hospitalization)
  Sender: FDA-Public Use
  Company Number: None

PATIENT
  Age: 47 Year
  Sex: Female
  Weight: 60.3284 kg

DRUGS (4)
  1. ALIMTA [Suspect]
     Indication: NON-SMALL CELL LUNG CANCER
     Dosage: 800 MG Q 3 WEEKS
     Dates: start: 19250413, end: 20050602
  2. THALIDOMIDE (CELGENE) [Suspect]
     Indication: NON-SMALL CELL LUNG CANCER
     Dosage: 50 MG QD
  3. VIT B12 [Concomitant]
  4. FOLIC ACID [Concomitant]

REACTIONS (5)
  - GENERAL PHYSICAL HEALTH DETERIORATION [None]
  - MUCOSAL INFLAMMATION [None]
  - NEUTROPENIA [None]
  - RENAL FAILURE [None]
  - THROMBOCYTOPENIA [None]
